FAERS Safety Report 5241871-9 (Version None)
Quarter: 2007Q1

REPORT INFORMATION
  Report Type: 
  Country: None (occurrence: None)
  Receive Date: 20070212
  Receipt Date: 20070125
  Transmission Date: 20070707
  Serious: Yes (Hospitalization)
  Sender: FDA-Public Use
  Company Number: US019264

PATIENT
  Age: 44 Year
  Sex: Female
  Weight: 102 kg

DRUGS (12)
  1. FENTANYL [Suspect]
     Indication: BREAKTHROUGH PAIN
     Dosage: 800  UG PRN BUCCAL
     Route: 002
     Dates: start: 20060929, end: 20061224
  2. PERCOCET [Suspect]
     Indication: BACK PAIN
     Dosage: 10/325 MG
     Dates: start: 20050623
  3. PERCOCET [Suspect]
     Indication: BREAKTHROUGH PAIN
     Dosage: 10/325 MG
     Dates: start: 20050623
  4. OXYCONTIN [Suspect]
     Indication: BACK PAIN
     Dosage: 20 MG QD ORAL
     Route: 048
     Dates: start: 20050623
  5. SOMA [Concomitant]
  6. ANSAID [Concomitant]
  7. DEPO PROVERA /00115201/ [Concomitant]
  8. PERPHENAZINE [Concomitant]
  9. TOFRANIL /00053902/ [Concomitant]
  10. XANAX [Concomitant]
  11. NAPROXEN [Concomitant]
  12. PREVACID [Concomitant]

REACTIONS (2)
  - DRUG ABUSER [None]
  - DRUG WITHDRAWAL SYNDROME [None]
